FAERS Safety Report 19081819 (Version 1)
Quarter: 2021Q2

REPORT INFORMATION
  Report Type: Other
  Country: LB (occurrence: LB)
  Receive Date: 20210401
  Receipt Date: 20210401
  Transmission Date: 20210717
  Serious: Yes (Hospitalization)
  Sender: FDA-Public Use
  Company Number: LB-AJANTA PHARMA USA INC.-2108746

PATIENT
  Age: 35 Year
  Sex: Male

DRUGS (1)
  1. TADALAFIL (ANDA 209654) [Suspect]
     Active Substance: TADALAFIL
     Indication: PRODUCT USED FOR UNKNOWN INDICATION
     Route: 048

REACTIONS (1)
  - Subarachnoid haemorrhage [Recovered/Resolved]
